FAERS Safety Report 6026127-9 (Version None)
Quarter: 2008Q4

REPORT INFORMATION
  Report Type: 
  Country: None (occurrence: None)
  Receive Date: 20081229
  Receipt Date: 20081212
  Transmission Date: 20090506
  Serious: Yes (Hospitalization)
  Sender: FDA-Public Use
  Company Number: 2008AL009964

PATIENT
  Age: 74 Year
  Sex: Male
  Weight: 86.1834 kg

DRUGS (22)
  1. DIGOXIN [Suspect]
     Indication: CHEST PAIN
     Dosage: 0.125MG, DAILY, PO
     Route: 048
     Dates: start: 20080318, end: 20080327
  2. DIGOXIN [Suspect]
     Indication: DIZZINESS
     Dosage: 0.125MG, DAILY, PO
     Route: 048
     Dates: start: 20080318, end: 20080327
  3. DIGOXIN [Suspect]
     Indication: PALPITATIONS
     Dosage: 0.125MG, DAILY, PO
     Route: 048
     Dates: start: 20080318, end: 20080327
  4. OXYCODONE [Concomitant]
  5. LISINOPRIL [Concomitant]
  6. PLAVIX [Concomitant]
  7. 8 OTHER UNSPECIFIED MEDICATIONS [Concomitant]
  8. SIMVASTATIN [Concomitant]
  9. AMBIEN [Concomitant]
  10. NORCO [Concomitant]
  11. METHADONE HCL [Concomitant]
  12. ASPIRIN [Concomitant]
  13. CYMBALTA [Concomitant]
  14. METOPROLOL [Concomitant]
  15. AMIODARONE HCL [Concomitant]
  16. NEXIUM [Concomitant]
  17. ZOLOFT [Concomitant]
  18. LIPITOR [Concomitant]
  19. PROTONIX [Concomitant]
  20. DETROL [Concomitant]
  21. OXYBUTYNIN CHLORIDE [Concomitant]
  22. MILK OF MAGNESIA [Concomitant]

REACTIONS (24)
  - ARTERIOSCLEROSIS CORONARY ARTERY [None]
  - BACK PAIN [None]
  - BLOOD CULTURE POSITIVE [None]
  - CHEST PAIN [None]
  - CIRCULATORY COLLAPSE [None]
  - CONTUSION [None]
  - CORONARY ARTERY ANEURYSM [None]
  - CORONARY ARTERY STENOSIS [None]
  - DEPRESSION [None]
  - DIZZINESS [None]
  - FALL [None]
  - GAIT DISTURBANCE [None]
  - HEAD INJURY [None]
  - HEADACHE [None]
  - JOINT INJURY [None]
  - LACERATION [None]
  - LAZINESS [None]
  - MENTAL STATUS CHANGES [None]
  - NEPHROLITHIASIS [None]
  - PAIN [None]
  - SEPTIC SHOCK [None]
  - STAPHYLOCOCCAL INFECTION [None]
  - TREMOR [None]
  - UROSEPSIS [None]
